FAERS Safety Report 14287799 (Version 3)
Quarter: 2018Q1

REPORT INFORMATION
  Report Type: Report from Study
  Country: CA (occurrence: CA)
  Receive Date: 20171214
  Receipt Date: 20180115
  Transmission Date: 20180509
  Serious: No
  Sender: FDA-Public Use
  Company Number: CA-SA-2017SA248925

PATIENT
  Sex: Male

DRUGS (10)
  1. RANITIDINE. [Concomitant]
     Active Substance: RANITIDINE
     Indication: PREMEDICATION
     Route: 048
     Dates: start: 20171204, end: 20171206
  2. PREDNISONE. [Concomitant]
     Active Substance: PREDNISONE
     Route: 048
     Dates: start: 20171201
  3. METHYLPREDNISOLONE. [Concomitant]
     Active Substance: METHYLPREDNISOLONE
     Indication: PREMEDICATION
     Route: 042
     Dates: start: 20171204, end: 20171206
  4. REACTINE [Concomitant]
     Active Substance: CETIRIZINE HYDROCHLORIDE
     Indication: PREMEDICATION
     Route: 048
     Dates: start: 20171204, end: 20171206
  5. VITAMIN D [Concomitant]
     Active Substance: CHOLECALCIFEROL
     Route: 048
  6. GRAVOL [Concomitant]
     Active Substance: DIMENHYDRINATE
     Indication: PREMEDICATION
     Route: 048
     Dates: start: 20171204, end: 20171206
  7. LEMTRADA [Suspect]
     Active Substance: ALEMTUZUMAB
     Indication: RELAPSING-REMITTING MULTIPLE SCLEROSIS
     Route: 041
     Dates: start: 20171204, end: 20171206
  8. BENADRYL [Concomitant]
     Active Substance: DIPHENHYDRAMINE HYDROCHLORIDE
     Indication: PREMEDICATION
     Route: 048
     Dates: start: 20171204, end: 20171206
  9. VALACICLOVIR [Concomitant]
     Active Substance: VALACYCLOVIR HYDROCHLORIDE
     Indication: PREMEDICATION
     Route: 048
     Dates: start: 20171201
  10. TYLENOL [Concomitant]
     Active Substance: ACETAMINOPHEN
     Indication: PREMEDICATION
     Route: 048
     Dates: start: 20171204

REACTIONS (15)
  - Arthralgia [Recovered/Resolved]
  - Feeling hot [Recovered/Resolved]
  - Tachycardia [Recovered/Resolved]
  - Fatigue [Recovering/Resolving]
  - Facial pain [Not Recovered/Not Resolved]
  - Chills [Recovered/Resolved]
  - Body temperature increased [Recovered/Resolved]
  - Chest discomfort [Recovering/Resolving]
  - Vision blurred [Recovered/Resolved]
  - Dysuria [Recovering/Resolving]
  - Dyspnoea [Recovering/Resolving]
  - Back pain [Recovered/Resolved]
  - Dysphagia [Not Recovered/Not Resolved]
  - Pain [Not Recovered/Not Resolved]
  - Flushing [Recovered/Resolved]

NARRATIVE: CASE EVENT DATE: 20171204
